FAERS Safety Report 6825384-6 (Version None)
Quarter: 2010Q3

REPORT INFORMATION
  Report Type: 
  Country: None (occurrence: None)
  Receive Date: 20100708
  Receipt Date: 20061127
  Transmission Date: 20110219
  Serious: No
  Sender: FDA-Public Use
  Company Number: US-PFIZER INC-2006148861

PATIENT
  Sex: Male
  Weight: 92.99 kg

DRUGS (3)
  1. CHANTIX [Suspect]
     Indication: SMOKING CESSATION THERAPY
     Dates: start: 20061103
  2. COZAAR [Concomitant]
  3. ZOCOR [Concomitant]

REACTIONS (3)
  - DYSPHAGIA [None]
  - GLOSSODYNIA [None]
  - STOMATITIS [None]
